FAERS Safety Report 17210334 (Version 2)
Quarter: 2023Q4

REPORT INFORMATION
  Report Type: Spontaneous
  Country: CA (occurrence: None)
  Receive Date: 20191227
  Receipt Date: 20231205
  Transmission Date: 20240110
  Serious: Yes (Other)
  Sender: FDA-Public Use
  Company Number: 2019SF87026

PATIENT
  Age: 52 Year
  Sex: Female

DRUGS (5)
  1. ROFLUMILAST [Suspect]
     Active Substance: ROFLUMILAST
     Indication: Product used for unknown indication
     Dosage: UNKNOWN
     Route: 048
  2. GLYCOPYRROLATE [Suspect]
     Active Substance: GLYCOPYRROLATE
     Indication: Product used for unknown indication
     Route: 065
  3. ALBUTEROL SULFATE [Suspect]
     Active Substance: ALBUTEROL SULFATE
     Indication: Product used for unknown indication
     Dates: start: 2004
  4. ZENHALE [Suspect]
     Active Substance: FORMOTEROL FUMARATE\MOMETASONE FUROATE
     Indication: Product used for unknown indication
     Route: 065
  5. PREDNISONE [Concomitant]
     Active Substance: PREDNISONE
     Indication: Product used for unknown indication

REACTIONS (12)
  - Asthma [Unknown]
  - Bone pain [Recovered/Resolved]
  - Dyspnoea [Unknown]
  - Heart rate increased [Unknown]
  - Loss of personal independence in daily activities [Unknown]
  - Migraine [Recovered/Resolved]
  - Respiration abnormal [Unknown]
  - Secretion discharge [Unknown]
  - Sleep disorder due to a general medical condition [Unknown]
  - Abdominal pain upper [Recovered/Resolved]
  - Wheezing [Unknown]
  - Haematochezia [Recovered/Resolved]
